FAERS Safety Report 5599314-1 (Version None)
Quarter: 2008Q1

REPORT INFORMATION
  Report Type: 
  Country: None (occurrence: None)
  Receive Date: 20080122
  Receipt Date: 20080111
  Transmission Date: 20080703
  Serious: Yes (Hospitalization)
  Sender: FDA-Public Use
  Company Number: FR-PFIZER INC-2008004499

PATIENT
  Sex: Male
  Weight: 65 kg

DRUGS (6)
  1. TAHOR [Suspect]
     Route: 048
     Dates: start: 20071004, end: 20071018
  2. ASPEGIC 1000 [Suspect]
     Route: 048
  3. SECTRAL [Concomitant]
     Route: 048
  4. TARDYFERON [Concomitant]
  5. ENOXAPARIN SODIUM [Concomitant]
     Dates: start: 20071004, end: 20071008
  6. MOPRAL [Concomitant]

REACTIONS (2)
  - THROMBOCYTOPENIA [None]
  - THROMBOCYTOPENIC PURPURA [None]
